FAERS Safety Report 16831069 (Version 1)
Quarter: 2019Q3

REPORT INFORMATION
  Report Type: Spontaneous
  Country: NL (occurrence: NL)
  Receive Date: 20190920
  Receipt Date: 20190920
  Transmission Date: 20191005
  Serious: Yes (Other)
  Sender: FDA-Public Use
  Company Number: NL-TEVA-2019-NL-1085137

PATIENT
  Age: 70 Year
  Sex: Female
  Weight: 65 kg

DRUGS (3)
  1. OMEPRAZOL (RVG 110107) [Concomitant]
     Indication: DYSPEPSIA
     Dosage: 20 MILLIGRAM DAILY;
     Route: 048
     Dates: start: 20190101
  2. TAMOXIFEN (RVG 10635) [Concomitant]
     Indication: NEOPLASM MALIGNANT
     Dosage: 20 MILLIGRAM DAILY;
     Route: 048
     Dates: start: 20190402
  3. CLARITROMYCINE TEVA [Suspect]
     Active Substance: CLARITHROMYCIN
     Indication: URINARY TRACT INFECTION
     Dosage: 1000 MILLIGRAM DAILY;
     Route: 048
     Dates: start: 20190619, end: 20190624

REACTIONS (5)
  - Malaise [Recovering/Resolving]
  - Yellow skin [Recovering/Resolving]
  - Jaundice [Unknown]
  - Hepatitis [Recovering/Resolving]
  - Alanine aminotransferase increased [Recovering/Resolving]

NARRATIVE: CASE EVENT DATE: 20190619
